FAERS Safety Report 13526506 (Version 1)
Quarter: 2017Q2

REPORT INFORMATION
  Report Type: Spontaneous
  Country: US (occurrence: US)
  Receive Date: 20170508
  Receipt Date: 20170508
  Transmission Date: 20170830
  Serious: Yes (Other)
  Sender: FDA-Public Use
  Company Number: None

PATIENT
  Age: 73 Year
  Sex: Female
  Weight: 60.3 kg

DRUGS (9)
  1. MAGNESIUM [Concomitant]
     Active Substance: MAGNESIUM
  2. CURCUMIN [Concomitant]
     Active Substance: CURCUMIN
  3. TUMERIC [Concomitant]
     Active Substance: HERBALS\TURMERIC
  4. COQ10 [Concomitant]
     Active Substance: UBIDECARENONE
  5. PEG-3350 AND ELECTROLYTES [Suspect]
     Active Substance: POLYETHYLENE GLYCOL 3350\POTASSIUM CHLORIDE\SODIUM BICARBONATE\SODIUM CHLORIDE\SODIUM SULFATE\SODIUM SULFATE ANHYDROUS
     Indication: COLONOSCOPY
     Dosage: QUANTITY:278 8 0Z GLASS;OTHER FREQUENCY:1/2 5PM, 1/2 10 PM;?
     Route: 048
     Dates: start: 20170427, end: 20170427
  6. MULTIPLE VITAMIN [Concomitant]
     Active Substance: VITAMINS
  7. PROBIOTIC [Concomitant]
     Active Substance: PROBIOTICS NOS
  8. VITAMIN D3 [Concomitant]
     Active Substance: CHOLECALCIFEROL
  9. LUMIGAN [Concomitant]
     Active Substance: BIMATOPROST

REACTIONS (3)
  - Supraventricular extrasystoles [None]
  - Blood pressure increased [None]
  - Heart rate increased [None]
